FAERS Safety Report 25549316 (Version 3)
Quarter: 2025Q3

REPORT INFORMATION
  Report Type: Spontaneous
  Country: US (occurrence: US)
  Receive Date: 20250714
  Receipt Date: 20250916
  Transmission Date: 20251021
  Serious: No
  Sender: ROCHE
  Company Number: US-ROCHE-10000329678

PATIENT
  Age: 68 Year
  Sex: Female
  Weight: 67.13 kg

DRUGS (6)
  1. ACTEMRA [Suspect]
     Active Substance: TOCILIZUMAB
     Indication: Rheumatoid arthritis
     Route: 058
     Dates: start: 202503, end: 20250616
  2. METOPROLOL TARTRATE [Concomitant]
     Active Substance: METOPROLOL TARTRATE
     Indication: Atrial fibrillation
     Route: 048
  3. ELIQUIS [Concomitant]
     Active Substance: APIXABAN
     Indication: Atrial fibrillation
     Route: 048
  4. HYDROCODONE [Concomitant]
     Active Substance: HYDROCODONE
     Indication: Back pain
     Dosage: DOSE IS 10/300MG
     Route: 048
  5. HYDROCODONE [Concomitant]
     Active Substance: HYDROCODONE
     Indication: Rheumatoid arthritis
  6. COENZYME Q10 [Concomitant]
     Active Substance: DIETARY SUPPLEMENT\UBIDECARENONE
     Route: 048

REACTIONS (3)
  - Product dose omission issue [Unknown]
  - Wrong technique in device usage process [Unknown]
  - No adverse event [Unknown]

NARRATIVE: CASE EVENT DATE: 20250630
